FAERS Safety Report 17581991 (Version 1)
Quarter: 2020Q1

REPORT INFORMATION
  Report Type: Report from Study
  Country: None (occurrence: CO)
  Receive Date: 20200325
  Receipt Date: 20200325
  Transmission Date: 20200409
  Serious: Yes (Hospitalization)
  Sender: FDA-Public Use
  Company Number: CO-ABBVIE-20K-036-3335500-00

PATIENT
  Age: 89 Year
  Sex: Female
  Weight: 42 kg

DRUGS (2)
  1. IMBRUVICA [Suspect]
     Active Substance: IBRUTINIB
     Indication: CHRONIC LYMPHOCYTIC LEUKAEMIA
     Route: 048
     Dates: start: 20170817, end: 20181109
  2. IMBRUVICA [Suspect]
     Active Substance: IBRUTINIB
     Route: 048
     Dates: start: 2019

REACTIONS (3)
  - Blood glucose increased [Recovering/Resolving]
  - Somnolence [Unknown]
  - Depressed mood [Unknown]

NARRATIVE: CASE EVENT DATE: 20200309
